FAERS Safety Report 6633446-1 (Version None)
Quarter: 2010Q1

REPORT INFORMATION
  Report Type: 
  Country: None (occurrence: None)
  Receive Date: 20100312
  Receipt Date: 20090331
  Transmission Date: 20100710
  Serious: No
  Sender: FDA-Public Use
  Company Number: US-ABBOTT-09P-163-0565719-00

PATIENT
  Sex: Male

DRUGS (1)
  1. ERYTHROMYCIN [Suspect]
     Indication: TOOTH ABSCESS
     Route: 048
     Dates: start: 19830101, end: 19830101

REACTIONS (1)
  - DYSPNOEA [None]
